FAERS Safety Report 10173259 (Version 1)
Quarter: 2014Q2

REPORT INFORMATION
  Report Type: Spontaneous
  Country: US (occurrence: US)
  Receive Date: 20140515
  Receipt Date: 20140515
  Transmission Date: 20141212
  Serious: No
  Sender: FDA-Public Use
  Company Number: US-PFIZER INC-2014131648

PATIENT
  Age: 68 Year
  Sex: Male

DRUGS (1)
  1. EFFEXOR XR [Suspect]
     Dosage: 75 MG, 2X/DAY (TAKE 1 CAPSULE BY ORAL ROUTE 2 TIMES EVERY DAY WITH FOOD)
     Route: 048

REACTIONS (2)
  - Drug hypersensitivity [Unknown]
  - Drug prescribing error [Unknown]
